FAERS Safety Report 10791793 (Version 3)
Quarter: 2016Q1

REPORT INFORMATION
  Report Type: Report from Study
  Country: US (occurrence: US)
  Receive Date: 20150213
  Receipt Date: 20160216
  Transmission Date: 20160525
  Serious: Yes (Other)
  Sender: FDA-Public Use
  Company Number: US-ROCHE-1535193

PATIENT

DRUGS (7)
  1. BENDAMUSTINE [Suspect]
     Active Substance: BENDAMUSTINE
     Dosage: ON DAY 1 AND 2 OF THE FIRST SIX 28 DAYS CYCLES, FOR CLL PATIENTS
     Route: 042
  2. BENDAMUSTINE [Suspect]
     Active Substance: BENDAMUSTINE
     Dosage: ON DAY 1 AND 2 FOR FIRST SIX CYCLES.
     Route: 042
  3. DUVELISIB [Suspect]
     Active Substance: DUVELISIB
     Dosage: UP TO 12 CYCLES
     Route: 048
  4. DUVELISIB [Suspect]
     Active Substance: DUVELISIB
     Dosage: UP TO 12 CYCLES
     Route: 048
  5. RITUXIMAB [Suspect]
     Active Substance: RITUXIMAB
     Indication: CHRONIC LYMPHOCYTIC LEUKAEMIA
     Dosage: ON DAY 1 ONCE WEEKLY DURING A 28 DAY CYCLE; 2 CYCLES OF RITUXIMAB WILL BE ADMINISTERED.
     Route: 042
  6. BENDAMUSTINE [Suspect]
     Active Substance: BENDAMUSTINE
     Indication: CHRONIC LYMPHOCYTIC LEUKAEMIA
     Dosage: ON DAY 1 AND 2 OF THE FIRST SIX 28 DAYS CYCLES, FOR NHL PATIENTS
     Route: 042
  7. DUVELISIB [Suspect]
     Active Substance: DUVELISIB
     Indication: CHRONIC LYMPHOCYTIC LEUKAEMIA
     Dosage: UP TO 12 CYCLES
     Route: 048

REACTIONS (8)
  - Aspartate aminotransferase increased [Unknown]
  - Mucosal inflammation [Unknown]
  - Neutropenia [Unknown]
  - Rash [Unknown]
  - Diarrhoea [Unknown]
  - Fatigue [Unknown]
  - Alanine aminotransferase increased [Unknown]
  - Anaemia [Unknown]
